FAERS Safety Report 5129705-4 (Version None)
Quarter: 2006Q4

REPORT INFORMATION
  Report Type: 
  Country: None (occurrence: None)
  Receive Date: 20061018
  Receipt Date: 20061010
  Transmission Date: 20070319
  Serious: Yes (Other)
  Sender: FDA-Public Use
  Company Number: S2006AU1010

PATIENT
  Age: 47 Year
  Sex: Female

DRUGS (1)
  1. BUPROPION HYDROCHLORIDE [Suspect]
     Indication: NICOTINE DEPENDENCE
     Route: 048

REACTIONS (4)
  - AGGRESSION [None]
  - AMNESIA [None]
  - URINARY INCONTINENCE [None]
  - WRIST FRACTURE [None]
